FAERS Safety Report 15920355 (Version 1)
Quarter: 2019Q1

REPORT INFORMATION
  Report Type: Report from Study
  Country: ES (occurrence: ES)
  Receive Date: 20190205
  Receipt Date: 20190205
  Transmission Date: 20190417
  Serious: Yes (Disabling)
  Sender: FDA-Public Use
  Company Number: ES-JNJFOC-20190202109

PATIENT
  Age: 66 Year
  Sex: Female
  Weight: 58 kg

DRUGS (4)
  1. PLD [Suspect]
     Active Substance: DOXORUBICIN HYDROCHLORIDE
     Indication: OVARIAN CANCER RECURRENT
     Dosage: CYCLE 1, DOSE: 46 (UNITS UNSPECIFIED)
     Route: 042
     Dates: start: 20180326
  2. YONDELIS [Suspect]
     Active Substance: TRABECTEDIN
     Indication: OVARIAN CANCER RECURRENT
     Dosage: CYCLE 1, DOSE 1.7 (UNITS UNSPECIFIED)
     Route: 042
     Dates: start: 20180326
  3. PLD [Suspect]
     Active Substance: DOXORUBICIN HYDROCHLORIDE
     Indication: OVARIAN CANCER RECURRENT
     Dosage: CYCLE 2, DOSE: 38 (UNITS UNSPECIFIED)
     Route: 042
     Dates: start: 20180424
  4. YONDELIS [Suspect]
     Active Substance: TRABECTEDIN
     Indication: OVARIAN CANCER RECURRENT
     Dosage: CYCLE 2, DOSE 1.4 (UNITS UNSPECIFIED)
     Route: 042
     Dates: start: 20180424

REACTIONS (3)
  - Neutropenia [Recovered/Resolved with Sequelae]
  - Asthenia [Recovered/Resolved]
  - Depressed mood [Recovered/Resolved]

NARRATIVE: CASE EVENT DATE: 20180501
